FAERS Safety Report 10417356 (Version 2)
Quarter: 2014Q3

REPORT INFORMATION
  Report Type: Spontaneous
  Country: US (occurrence: US)
  Receive Date: 20140829
  Receipt Date: 20140829
  Transmission Date: 20150326
  Serious: Yes (Hospitalization, Other)
  Sender: FDA-Public Use
  Company Number: US-009507513-2009SP036144

PATIENT
  Sex: Female
  Weight: 83.92 kg

DRUGS (5)
  1. NUVARING [Suspect]
     Active Substance: ETHINYL ESTRADIOL\ETONOGESTREL
     Indication: CONTRACEPTION
     Route: 067
     Dates: start: 200507, end: 20071114
  2. BACLOFEN. [Concomitant]
     Active Substance: BACLOFEN
  3. MS CONTIN [Concomitant]
     Active Substance: MORPHINE SULFATE
  4. LEVOXYL [Concomitant]
     Active Substance: LEVOTHYROXINE SODIUM
  5. NEURONTIN [Concomitant]
     Active Substance: GABAPENTIN

REACTIONS (12)
  - Dysuria [Unknown]
  - Depression [Unknown]
  - Pulmonary hypertension [Not Recovered/Not Resolved]
  - Atrial septal defect [Unknown]
  - Mitral valve incompetence [Recovering/Resolving]
  - Anxiety disorder [Not Recovered/Not Resolved]
  - Supraventricular tachycardia [Recovering/Resolving]
  - Unintended pregnancy [Recovered/Resolved]
  - Pulmonary embolism [Unknown]
  - Syncope [Unknown]
  - Thrombosis [Unknown]
  - Haematuria [Unknown]

NARRATIVE: CASE EVENT DATE: 2007
